FAERS Safety Report 5672319-8 (Version None)
Quarter: 2008Q2

REPORT INFORMATION
  Report Type: 
  Country: None (occurrence: None)
  Receive Date: 20080219
  Receipt Date: 20071210
  Transmission Date: 20081010
  Serious: No
  Sender: FDA-Public Use
  Company Number: TPA2007A02327

PATIENT
  Age: 68 Year
  Sex: Male
  Weight: 113.3993 kg

DRUGS (3)
  1. ROZEREM [Suspect]
     Indication: INSOMNIA
     Dosage: 8 MG, QHS, PER ORAL
     Route: 048
     Dates: start: 20071106, end: 20071108
  2. LISINOPRIL [Concomitant]
  3. LIPITOR [Concomitant]

REACTIONS (3)
  - DIZZINESS [None]
  - MIDDLE INSOMNIA [None]
  - VERTIGO [None]
